FAERS Safety Report 6615068 (Version 3)
Quarter: 2013Q1

REPORT INFORMATION
  Report Type: Spontaneous
  Country: GB (occurrence: GB)
  Receive Date: 20080415
  Receipt Date: 20130320
  Transmission Date: 20140127
  Serious: Yes (Life-Threatening, Hospitalization)
  Sender: FDA-Public Use
  Company Number: GB-JNJFOC-20080402334

PATIENT
  Age: 66 Year
  Sex: Male
  Weight: 90 kg

DRUGS (3)
  1. MOTRIN [Suspect]
     Indication: PROSTATIC PAIN
     Route: 048
     Dates: start: 20020515, end: 20020515
  2. SALBUTAMOL [Concomitant]
     Indication: ASTHMA
     Dosage: TWO, TWICE A DAY
     Route: 055
     Dates: start: 200105
  3. ATROVENT [Concomitant]
     Dosage: TWO TO FOUR TIMES A DAY
     Route: 055

REACTIONS (1)
  - Respiratory arrest [Recovered/Resolved]
